FAERS Safety Report 7493161-1 (Version None)
Quarter: 2011Q2

REPORT INFORMATION
  Report Type: 
  Country: None (occurrence: None)
  Receive Date: 20110519
  Receipt Date: 20110519
  Transmission Date: 20111010
  Serious: Yes (Life-Threatening)
  Sender: FDA-Public Use
  Company Number: None

PATIENT
  Age: 29 Year
  Sex: Female
  Weight: 64.4108 kg

DRUGS (5)
  1. ALBUTEROL SULFATE AUTOHALER [Concomitant]
  2. ADVAIR DISKUS 100/50 [Concomitant]
  3. THEOPHYLLINE [Concomitant]
  4. SINGULAIR [Concomitant]
  5. XOLAIR [Suspect]
     Indication: ASTHMA
     Dosage: 1.2 ML MONTHLY SQ
     Route: 058
     Dates: start: 20041008, end: 20081212

REACTIONS (1)
  - URTICARIA [None]
